FAERS Safety Report 4924809-0 (Version None)
Quarter: 2006Q1

REPORT INFORMATION
  Report Type: 
  Country: None (occurrence: None)
  Receive Date: 20060227
  Receipt Date: 20050930
  Transmission Date: 20060701
  Serious: Yes (Hospitalization)
  Sender: FDA-Public Use
  Company Number: US-MERCK-0510USA01398

PATIENT
  Age: 69 Year
  Sex: Male
  Weight: 84 kg

DRUGS (1)
  1. VIOXX [Suspect]
     Indication: ARTHRITIS
     Route: 048
     Dates: start: 20010901, end: 20041001

REACTIONS (3)
  - CORONARY ARTERY DISEASE [None]
  - HERNIA [None]
  - MYOCARDIAL INFARCTION [None]
